FAERS Safety Report 15857239 (Version 3)
Quarter: 2019Q3

REPORT INFORMATION
  Report Type: Spontaneous
  Country: NZ (occurrence: NZ)
  Receive Date: 20190123
  Receipt Date: 20190703
  Transmission Date: 20191004
  Serious: Yes (Hospitalization)
  Sender: FDA-Public Use
  Company Number: NZ-AMREGENT-20190073

PATIENT
  Sex: Female

DRUGS (3)
  1. FERROUS FUMARATE [Concomitant]
     Active Substance: FERROUS FUMARATE
     Dosage: UNKNOWN
     Route: 048
  2. FERINJECT [Suspect]
     Active Substance: FERRIC CARBOXYMALTOSE
     Dosage: 500 MG
     Route: 064
     Dates: start: 201812
  3. IODISED OIL INJECTION [Concomitant]
     Dosage: UNKNOWN
     Route: 065

REACTIONS (6)
  - Low birth weight baby [Unknown]
  - Foetal exposure during pregnancy [Unknown]
  - Respiratory distress [Unknown]
  - Apgar score low [Unknown]
  - Neonatal respiratory depression [Unknown]
  - Neonatal disorder [Unknown]

NARRATIVE: CASE EVENT DATE: 201812
